FAERS Safety Report 24580500 (Version 1)
Quarter: 2024Q4

REPORT INFORMATION
  Report Type: Spontaneous
  Country: US (occurrence: US)
  Receive Date: 20241105
  Receipt Date: 20241105
  Transmission Date: 20250114
  Serious: No
  Sender: JOHNSON AND JOHNSON
  Company Number: US-JNJFOC-20241077653

PATIENT
  Age: 23 Year
  Sex: Male

DRUGS (2)
  1. RISPERDAL [Suspect]
     Active Substance: RISPERIDONE
     Indication: Product used for unknown indication
     Route: 048
  2. LOXAPINE [Concomitant]
     Active Substance: LOXAPINE

REACTIONS (2)
  - Blood prolactin increased [Unknown]
  - Off label use [Unknown]

NARRATIVE: CASE EVENT DATE: 20130606
